FAERS Safety Report 4367076-1 (Version None)
Quarter: 2004Q2

REPORT INFORMATION
  Report Type: 
  Country: None (occurrence: None)
  Receive Date: 20040524
  Receipt Date: 20040510
  Transmission Date: 20050107
  Serious: Yes (Hospitalization, Other)
  Sender: FDA-Public Use
  Company Number: US-JNJFOC-20031100788

PATIENT
  Age: 77 Year
  Sex: Male
  Weight: 80.2867 kg

DRUGS (30)
  1. REMICADE [Suspect]
     Indication: RHEUMATOID ARTHRITIS
     Dosage: RECEIVED APPROXIMATELY THREE INFUSIONS
     Route: 042
     Dates: start: 20021031
  2. REMICADE [Suspect]
     Indication: RHEUMATOID ARTHRITIS
     Dosage: RECEIVED APPROXIMATELY THREE INFUSIONS
     Route: 042
     Dates: start: 20021112
  3. REMICADE [Suspect]
     Indication: RHEUMATOID ARTHRITIS
     Dosage: RECEIVED APPROXIMATELY THREE INFUSIONS
     Route: 042
     Dates: start: 20021201
  4. LIPITOR [Concomitant]
  5. MIACALCIN [Concomitant]
  6. BUMEX [Concomitant]
  7. SODIUM CHLORIDE [Concomitant]
  8. FOLIC ACID [Concomitant]
  9. LOTENSIN [Concomitant]
  10. FLOMAX [Concomitant]
  11. OXYCONTIN [Concomitant]
  12. NORVASC [Concomitant]
  13. HYDROCODONE (HYDROCODONE) [Concomitant]
  14. PREDNISONE TAB [Concomitant]
  15. CALTRATE (CALCIUM CARBONATE) [Concomitant]
  16. PLAQUENIL [Concomitant]
  17. MAGIC MOUTH WASH (ANTISEPTICS) [Concomitant]
  18. MECLIZINE [Concomitant]
  19. MORPHINE [Suspect]
     Indication: PAIN
  20. ALLEGRA [Concomitant]
  21. PHENERGAN [Suspect]
  22. CALTRATE (CALCIUM CARBONATE) [Concomitant]
  23. NEOSPORIN (NEOSPORIN POWDER) [Concomitant]
  24. VIOXX [Concomitant]
  25. CELEBREX [Concomitant]
  26. MOTRIN [Concomitant]
  27. PREDNISONE [Concomitant]
  28. OXYCOTIN (OXYCODONE HYDROCHLORIDE) [Suspect]
     Indication: PAIN
  29. .. [Concomitant]
  30. .... [Concomitant]

REACTIONS (39)
  - AGGRESSION [None]
  - ANHEDONIA [None]
  - ANOREXIA [None]
  - ASPIRATION [None]
  - CANDIDIASIS [None]
  - CATHETER RELATED COMPLICATION [None]
  - CHEST PAIN [None]
  - CONFUSIONAL STATE [None]
  - DEEP VEIN THROMBOSIS [None]
  - DEHYDRATION [None]
  - DEMENTIA ALZHEIMER'S TYPE [None]
  - DEPRESSED LEVEL OF CONSCIOUSNESS [None]
  - DIARRHOEA [None]
  - DIZZINESS [None]
  - DYSPHAGIA [None]
  - ECCHYMOSIS [None]
  - FAECAL OCCULT BLOOD POSITIVE [None]
  - HELICOBACTER GASTRITIS [None]
  - HYPERTENSION [None]
  - IMPAIRED HEALING [None]
  - INCONTINENCE [None]
  - INNER EAR DISORDER [None]
  - JOINT DISLOCATION [None]
  - LETHARGY [None]
  - MENTAL STATUS CHANGES [None]
  - MYOCARDIAL ISCHAEMIA [None]
  - PAIN [None]
  - PARAESTHESIA [None]
  - POLYTRAUMATISM [None]
  - PULMONARY TUBERCULOSIS [None]
  - RASH GENERALISED [None]
  - RASH PRURITIC [None]
  - SCAB [None]
  - SPINAL COMPRESSION FRACTURE [None]
  - STOMATITIS [None]
  - THERAPY NON-RESPONDER [None]
  - UPPER RESPIRATORY TRACT INFECTION [None]
  - URINARY TRACT INFECTION [None]
  - WEGENER'S GRANULOMATOSIS [None]
